FAERS Safety Report 8429644-7 (Version None)
Quarter: 2012Q2

REPORT INFORMATION
  Report Type: 
  Country: None (occurrence: None)
  Receive Date: 20120604
  Receipt Date: 20120518
  Transmission Date: 20120825
  Serious: Yes (Other)
  Sender: FDA-Public Use
  Company Number: 201205082

PATIENT
  Sex: Male

DRUGS (1)
  1. XIAPEX (COLLAGENASE CLOSTRIDUM HISTOLYTICUM) [Suspect]
     Indication: PRODUCT USED FOR UNKNOWN INDICATION
     Dosage: INTRALESIONAL
     Route: 026

REACTIONS (2)
  - WOUND SECRETION [None]
  - LACERATION [None]
